FAERS Safety Report 7112119-5 (Version None)
Quarter: 2010Q4

REPORT INFORMATION
  Report Type: 
  Country: None (occurrence: None)
  Receive Date: 20101119
  Receipt Date: 20091124
  Transmission Date: 20110411
  Serious: No
  Sender: FDA-Public Use
  Company Number: A0817036A

PATIENT
  Age: 78 Year
  Sex: Male

DRUGS (6)
  1. AVODART [Suspect]
     Route: 065
     Dates: start: 20070430, end: 20070925
  2. BUSPIRONE HCL [Concomitant]
  3. DIGESTIVE ENZYME [Concomitant]
  4. AMITRIPTYLINE HCL [Concomitant]
  5. OTHER MEDICATIONS [Concomitant]
  6. LIPITOR [Concomitant]

REACTIONS (1)
  - ILL-DEFINED DISORDER [None]
